FAERS Safety Report 8854110 (Version 2)
Quarter: 2012Q4

REPORT INFORMATION
  Report Type: 
  Country: CA (occurrence: CA)
  Receive Date: 20121022
  Receipt Date: 20121029
  Transmission Date: 20130627
  Serious: Yes (Life-Threatening, Hospitalization)
  Sender: FDA-Public Use
  Company Number: CA-JNJFOC-20121010239

PATIENT
  Age: 43 Year
  Sex: Male
  Weight: 63.5 kg

DRUGS (1)
  1. BENYLIN [Suspect]
     Indication: COUGH
     Route: 048
     Dates: start: 20120617, end: 20120617

REACTIONS (11)
  - Transient ischaemic attack [Recovered/Resolved]
  - Syncope [Recovered/Resolved]
  - Skin discolouration [Recovered/Resolved]
  - Breath sounds abnormal [Recovered/Resolved]
  - Loss of consciousness [Recovered/Resolved]
  - Pulse absent [Recovered/Resolved]
  - Slow speech [Recovered/Resolved]
  - Hypoaesthesia [Recovered/Resolved]
  - Coordination abnormal [Recovered/Resolved]
  - Pulmonary congestion [Recovered/Resolved]
  - Hypersensitivity [Recovered/Resolved]
